FAERS Safety Report 23873497 (Version 3)
Quarter: 2024Q4

REPORT INFORMATION
  Report Type: Report from Study
  Country: US (occurrence: US)
  Receive Date: 20240520
  Receipt Date: 20241003
  Transmission Date: 20250115
  Serious: Yes (Hospitalization, Other)
  Sender: ABBVIE
  Company Number: US-ABBVIE-5727961

PATIENT
  Age: 72 Year
  Sex: Female

DRUGS (3)
  1. LINZESS [Suspect]
     Active Substance: LINACLOTIDE
     Indication: Product used for unknown indication
     Dosage: DOSE: 1 CAPSULE EVERY DAY BY ORAL ROUTE FOR 16 DAYS?FORM STRENGTH: 290 MICROGRAM
     Route: 048
  2. LINZESS [Suspect]
     Active Substance: LINACLOTIDE
     Indication: Product used for unknown indication
     Dosage: FORM STRENGTH: 145 MICROGRAM
     Route: 048
  3. LINZESS [Suspect]
     Active Substance: LINACLOTIDE
     Indication: Product used for unknown indication
     Dosage: 145 MICROGRAM
     Route: 048

REACTIONS (39)
  - Deep vein thrombosis [Unknown]
  - Sleep disorder [Unknown]
  - Frequent bowel movements [Not Recovered/Not Resolved]
  - Cystitis [Unknown]
  - Ovarian cyst [Unknown]
  - Muscle spasms [Not Recovered/Not Resolved]
  - Hypercholesterolaemia [Unknown]
  - Sleep apnoea syndrome [Unknown]
  - Haemangioma of bone [Unknown]
  - Irritable bowel syndrome [Unknown]
  - Gastrooesophageal reflux disease [Unknown]
  - Periarthritis [Unknown]
  - Somatic dysfunction [Unknown]
  - Neck pain [Unknown]
  - Weight decreased [Unknown]
  - Back pain [Unknown]
  - Blood potassium abnormal [Unknown]
  - Fatty liver alcoholic [Unknown]
  - Type V hyperlipidaemia [Unknown]
  - Osteoporosis [Unknown]
  - Nasal turbinate hypertrophy [Unknown]
  - Hyperadrenocorticism [Unknown]
  - Dry skin [Unknown]
  - Impaired fasting glucose [Unknown]
  - Essential hypertension [Unknown]
  - Dysgeusia [Unknown]
  - Lyme disease [Unknown]
  - Rhinitis allergic [Unknown]
  - Osteoarthritis [Unknown]
  - Nasal septum deviation [Unknown]
  - Obstructive sleep apnoea syndrome [Unknown]
  - Varicose vein [Unknown]
  - Osteopenia [Unknown]
  - Tremor [Unknown]
  - Therapeutic product effect decreased [Unknown]
  - Mammogram abnormal [Unknown]
  - Vertigo [Unknown]
  - Flatulence [Not Recovered/Not Resolved]
  - Rhinitis [Unknown]

NARRATIVE: CASE EVENT DATE: 20180911
